FAERS Safety Report 6883325-X (Version None)
Quarter: 2010Q3

REPORT INFORMATION
  Report Type: 
  Country: None (occurrence: None)
  Receive Date: 20100727
  Receipt Date: 20080110
  Transmission Date: 20110219
  Serious: Yes (Hospitalization)
  Sender: FDA-Public Use
  Company Number: US-PFIZER INC-2006105617

PATIENT
  Sex: Female

DRUGS (4)
  1. CELEBREX [Suspect]
     Indication: ARTHRITIS
     Dates: start: 19991201
  2. CELEBREX [Suspect]
     Indication: PAIN
  3. VIOXX [Suspect]
     Indication: ARTHRITIS
     Dosage: ONE - TWO PER DAY
     Dates: start: 20030901
  4. VIOXX [Suspect]
     Indication: PAIN

REACTIONS (1)
  - CEREBROVASCULAR ACCIDENT [None]
